FAERS Safety Report 20430626 (Version 2)
Quarter: 2023Q1

REPORT INFORMATION
  Report Type: Report from Study
  Country: FR (occurrence: FR)
  Receive Date: 20220204
  Receipt Date: 20230203
  Transmission Date: 20230418
  Serious: Yes (Hospitalization, Other)
  Sender: FDA-Public Use
  Company Number: FR-SERVIER-S20012938

PATIENT

DRUGS (7)
  1. PEGASPARGASE [Suspect]
     Active Substance: PEGASPARGASE
     Indication: Acute lymphocytic leukaemia
     Dosage: 4500 IU, ON D12 (REAL D13)
     Route: 042
     Dates: start: 20201019, end: 20201019
  2. PREDNISOLONE [Suspect]
     Active Substance: PREDNISOLONE
     Indication: Acute lymphocytic leukaemia
     Dosage: 110 MG, D8 TO D28
     Route: 048
     Dates: start: 20201014, end: 20201103
  3. VINCRISTINE [Suspect]
     Active Substance: VINCRISTINE
     Indication: Acute lymphocytic leukaemia
     Dosage: 2 MG, D8, D15, D22, D29 (DELAYED)
     Route: 042
     Dates: start: 20201014, end: 20201109
  4. DAUNORUBICIN [Suspect]
     Active Substance: DAUNORUBICIN
     Indication: Acute lymphocytic leukaemia
     Dosage: 55 MG, D8, D15, D22, D29 (DELAYED)
     Route: 042
     Dates: start: 20201014, end: 20201109
  5. METHOTREXATE [Suspect]
     Active Substance: METHOTREXATE
     Indication: Acute lymphocytic leukaemia
     Dosage: 15 MG, D13, D24 (REAL D27)
     Route: 037
     Dates: start: 20201019, end: 20201102
  6. CYTARABINE [Suspect]
     Active Substance: CYTARABINE
     Indication: Acute lymphocytic leukaemia
     Dosage: 30 MG, D13, D24 (REAL D27)
     Route: 037
     Dates: start: 20201019, end: 20201102
  7. HYDROCORTISONE [Suspect]
     Active Substance: HYDROCORTISONE
     Indication: Acute lymphocytic leukaemia
     Dosage: 15 MG, D13, D24 (REAL D27)
     Route: 037
     Dates: start: 20201019, end: 20201102

REACTIONS (3)
  - Malnutrition [Recovering/Resolving]
  - Appendicitis [Recovered/Resolved]
  - Hyperbilirubinaemia [Recovered/Resolved]

NARRATIVE: CASE EVENT DATE: 20201105
